FAERS Safety Report 24916339 (Version 1)
Quarter: 2025Q1

REPORT INFORMATION
  Report Type: Spontaneous
  Country: IN (occurrence: IN)
  Receive Date: 20250203
  Receipt Date: 20250203
  Transmission Date: 20250408
  Serious: Yes (Other)
  Sender: YILING PHARMACEUTICAL LTD
  Company Number: IN-YILING-2025YPLIT0003

PATIENT
  Age: 21 Year
  Sex: Male

DRUGS (3)
  1. ACYCLOVIR [Suspect]
     Active Substance: ACYCLOVIR
     Indication: Skin papilloma
     Route: 026
  2. ACYCLOVIR [Suspect]
     Active Substance: ACYCLOVIR
     Indication: Skin papilloma
  3. LIDOCAINE HYDROCHLORIDE [Suspect]
     Active Substance: LIDOCAINE HYDROCHLORIDE
     Indication: Skin papilloma
     Route: 065

REACTIONS (3)
  - Thrombosis [Unknown]
  - Extravasation [Unknown]
  - Off label use [Unknown]
